FAERS Safety Report 12977711 (Version 2)
Quarter: 2017Q2

REPORT INFORMATION
  Report Type: Spontaneous
  Country: US (occurrence: US)
  Receive Date: 20161128
  Receipt Date: 20170413
  Transmission Date: 20170830
  Serious: Yes (Other)
  Sender: FDA-Public Use
  Company Number: US-TEVA-715425ACC

PATIENT
  Age: 30 Year
  Sex: Female
  Weight: 74.46 kg

DRUGS (1)
  1. PARAGARD T 380A [Suspect]
     Active Substance: COPPER
     Indication: CONTRACEPTION
     Dates: start: 20161014, end: 20161118

REACTIONS (2)
  - Vaginal discharge [Unknown]
  - Device dislocation [Recovered/Resolved with Sequelae]

NARRATIVE: CASE EVENT DATE: 20161118
